FAERS Safety Report 15796930 (Version 1)
Quarter: 2019Q1

REPORT INFORMATION
  Report Type: Spontaneous
  Country: US (occurrence: US)
  Receive Date: 20190108
  Receipt Date: 20190108
  Transmission Date: 20190417
  Serious: Yes (Hospitalization, Other)
  Sender: FDA-Public Use
  Company Number: US-SUN PHARMACEUTICAL INDUSTRIES LTD-2018US-178069

PATIENT
  Age: 17 Year
  Sex: Male

DRUGS (14)
  1. METOPROLOL. [Concomitant]
     Active Substance: METOPROLOL
     Indication: ANXIETY
     Dosage: 25 MILLIGRAM AT NIGHT
  2. AMLODIPINE [Concomitant]
     Active Substance: AMLODIPINE BESYLATE
     Indication: ANXIETY
  3. LISINOPRIL. [Concomitant]
     Active Substance: LISINOPRIL
     Indication: HYPERTENSION
  4. RANITIDINE. [Concomitant]
     Active Substance: RANITIDINE
     Dosage: 60(EVERY 6 HOURS)
  5. ERYTHROPOIETIN [Suspect]
     Active Substance: ERYTHROPOIETIN
     Indication: PRODUCT USED FOR UNKNOWN INDICATION
     Dosage: 120 U/KG/WEEK
  6. HEPARIN [Suspect]
     Active Substance: HEPARIN SODIUM
     Indication: DIALYSIS
     Dosage: 1,300 U (22.8 U/KG) LOAD AND 1,300 U/H CONTINUOUS INFUSION DURING DIALYSIS
     Route: 065
  7. AMLODIPINE [Concomitant]
     Active Substance: AMLODIPINE BESYLATE
     Indication: HYPERTENSION
     Dosage: 10 MILLIGRAM, BID DAILY
     Route: 065
  8. LISINOPRIL. [Concomitant]
     Active Substance: LISINOPRIL
     Indication: ANXIETY
     Dosage: 30 MILLIGRAM, DAILY
     Route: 048
  9. SODIUM FERRIC GLUCONATE [Suspect]
     Active Substance: SODIUM FERRIC GLUCONATE COMPLEX
     Indication: PRODUCT USED FOR UNKNOWN INDICATION
     Dosage: 125 MG EVERY OTHER WEEK
     Route: 065
  10. RANITIDINE. [Concomitant]
     Active Substance: RANITIDINE
     Indication: PRODUCT USED FOR UNKNOWN INDICATION
     Dosage: 75 MILLIGRAM DAILY
     Route: 065
  11. CALCITRIOL. [Concomitant]
     Active Substance: CALCITRIOL
     Indication: PRODUCT USED FOR UNKNOWN INDICATION
     Dosage: 0.2 MICROGRAM, 1/WEEK
  12. PSEUDOEPHEDRINE. [Suspect]
     Active Substance: PSEUDOEPHEDRINE HYDROCHLORIDE
     Indication: PRIAPISM
     Dosage: 60 MILLIGRAM(EVERY 6 HOURS)
     Route: 065
  13. METOPROLOL. [Concomitant]
     Active Substance: METOPROLOL
     Indication: HYPERTENSION
  14. SEVELAMER [Concomitant]
     Active Substance: SEVELAMER
     Indication: PRODUCT USED FOR UNKNOWN INDICATION
     Dosage: UNK

REACTIONS (10)
  - Feeling abnormal [Unknown]
  - Toxicity to various agents [Recovered/Resolved]
  - Priapism [Recovered/Resolved]
  - Paraesthesia oral [Unknown]
  - Anxiety [Recovering/Resolving]
  - Swollen tongue [Unknown]
  - Pain in jaw [Recovered/Resolved]
  - Dyspnoea [Recovering/Resolving]
  - Hallucination [Recovered/Resolved]
  - Blood pressure increased [Unknown]
